FAERS Safety Report 23068336 (Version 1)
Quarter: 2023Q4

REPORT INFORMATION
  Report Type: Report from Study
  Country: CA (occurrence: CA)
  Receive Date: 20231016
  Receipt Date: 20231016
  Transmission Date: 20240110
  Serious: Yes (Other)
  Sender: FDA-Public Use
  Company Number: CA-JNJFOC-20230904148

PATIENT
  Age: 50 Year
  Sex: Female
  Weight: 82.174 kg

DRUGS (1)
  1. REMICADE [Suspect]
     Active Substance: INFLIXIMAB
     Indication: Crohn^s disease
     Dosage: ON 01-SEP-2023, THE PATIENT RECEIVED 53 RD INFLIXIMAB, RECOMBINANT INFUSION AT DOSE OF 700 MG AND CO
     Route: 041
     Dates: start: 20160729

REACTIONS (2)
  - Crohn^s disease [Unknown]
  - COVID-19 [Recovering/Resolving]

NARRATIVE: CASE EVENT DATE: 20230831
